FAERS Safety Report 12136340 (Version 1)
Quarter: 2016Q1

REPORT INFORMATION
  Report Type: Spontaneous
  Country: US (occurrence: None)
  Receive Date: 20160301
  Receipt Date: 20160301
  Transmission Date: 20160526
  Serious: No
  Sender: FDA-Public Use
  Company Number: None

PATIENT
  Age: 41 Year
  Sex: Female
  Weight: 74.84 kg

DRUGS (1)
  1. LINZESS [Suspect]
     Active Substance: LINACLOTIDE
     Indication: IRRITABLE BOWEL SYNDROME
     Dosage: 1 PILL ONCE DAILY
     Route: 048
     Dates: start: 20151015, end: 20160111

REACTIONS (6)
  - Protein total decreased [None]
  - Eye haemorrhage [None]
  - Haematocrit decreased [None]
  - Blood disorder [None]
  - Anal haemorrhage [None]
  - Contusion [None]

NARRATIVE: CASE EVENT DATE: 20160115
